FAERS Safety Report 5618797-1 (Version None)
Quarter: 2008Q1

REPORT INFORMATION
  Report Type: 
  Country: None (occurrence: None)
  Receive Date: 20080207
  Receipt Date: 20080128
  Transmission Date: 20080703
  Serious: Yes (Other)
  Sender: FDA-Public Use
  Company Number: US-PFIZER INC-2008009094

PATIENT
  Sex: Female
  Weight: 99.545 kg

DRUGS (3)
  1. CHANTIX [Suspect]
     Indication: SMOKING CESSATION THERAPY
  2. VIRAMUNE [Concomitant]
  3. TRUVADA [Concomitant]

REACTIONS (3)
  - BLOOD PRESSURE DECREASED [None]
  - MEDICATION ERROR [None]
  - VIRAL LOAD INCREASED [None]
